FAERS Safety Report 4844740-9 (Version None)
Quarter: 2005Q4

REPORT INFORMATION
  Report Type: 
  Country: None (occurrence: None)
  Receive Date: 20051128
  Receipt Date: 20051116
  Transmission Date: 20060501
  Serious: Yes (Hospitalization)
  Sender: FDA-Public Use
  Company Number: HQWYE597517NOV05

PATIENT
  Age: 71 Year
  Sex: Male

DRUGS (2)
  1. EFFEXOR XR [Suspect]
     Dosage: 225 MG 1X PER 1 DAY
     Route: 048
  2. UNSPECIFIED BETA BLOCKER (UNSPECIFIED BETA BLOCKER) [Concomitant]

REACTIONS (3)
  - FALL [None]
  - HEAD INJURY [None]
  - HYPOTENSION [None]
